FAERS Safety Report 5584420-8 (Version None)
Quarter: 2008Q1

REPORT INFORMATION
  Report Type: 
  Country: None (occurrence: None)
  Receive Date: 20080108
  Receipt Date: 20071226
  Transmission Date: 20080703
  Serious: Yes (Hospitalization)
  Sender: FDA-Public Use
  Company Number: ES-ELI_LILLY_AND_COMPANY-ES200801000530

PATIENT
  Age: 88 Year
  Sex: Female

DRUGS (5)
  1. FORTEO [Suspect]
     Indication: OSTEOPOROSIS
     Dosage: 20 UG, UNK
     Route: 058
     Dates: start: 20060901, end: 20071219
  2. OMEPRAZOLE [Concomitant]
     Indication: PARKINSON'S DISEASE
  3. CALCIUM [Concomitant]
     Dates: end: 20071219
  4. VITAMIN B [Concomitant]
     Dates: end: 20071219
  5. SIBELIUM [Concomitant]
     Dates: end: 20071219

REACTIONS (3)
  - ABDOMINAL PAIN [None]
  - JAUNDICE [None]
  - PYREXIA [None]
